FAERS Safety Report 7070455-5 (Version None)
Quarter: 2010Q4

REPORT INFORMATION
  Report Type: 
  Country: None (occurrence: None)
  Receive Date: 20101028
  Receipt Date: 20101028
  Transmission Date: 20110411
  Serious: Yes (Other)
  Sender: FDA-Public Use
  Company Number: None

PATIENT
  Age: 21 Year
  Sex: Male
  Weight: 54.4316 kg

DRUGS (4)
  1. LIALDA [Suspect]
     Indication: CROHN'S DISEASE
     Dosage: 1 TABLET DAILY BY MOUTH
     Route: 048
     Dates: start: 20100911
  2. FOLIC ACID [Concomitant]
  3. METHOTREXATE [Concomitant]
  4. PREVACID [Concomitant]

REACTIONS (6)
  - DIARRHOEA HAEMORRHAGIC [None]
  - DYSSTASIA [None]
  - FLUID INTAKE REDUCED [None]
  - HAEMATEMESIS [None]
  - HYPOPHAGIA [None]
  - NAUSEA [None]
